FAERS Safety Report 19196756 (Version 2)
Quarter: 2022Q2

REPORT INFORMATION
  Report Type: Report from Study
  Country: JP (occurrence: None)
  Receive Date: 20210429
  Receipt Date: 20220629
  Transmission Date: 20220721
  Serious: Yes (Hospitalization)
  Sender: FDA-Public Use
  Company Number: JP-ROCHE-2015013

PATIENT
  Age: 61 Year
  Sex: Female
  Weight: 48.8 kg

DRUGS (24)
  1. ATEZOLIZUMAB [Suspect]
     Active Substance: ATEZOLIZUMAB
     Indication: Ovarian cancer
     Dosage: ON DAY 1 OF EACH 21-DAY CYCLE?MOST RECENT DOSE PRIOR TO FIRST EPISODE OF FEVER: 24/OCT/2017?MOST REC
     Route: 042
     Dates: start: 20170809
  2. PACLITAXEL [Suspect]
     Active Substance: PACLITAXEL
     Indication: Ovarian cancer
     Dosage: DAY 1 OF EACH 21-DAY CYCLE?MOST RECENT DOSE PRIOR TO FIRST EPISODE OF FEVER: 24/OCT/2017 (DOSE: 253
     Route: 042
     Dates: start: 20170809
  3. CARBOPLATIN [Suspect]
     Active Substance: CARBOPLATIN
     Indication: Ovarian cancer
     Dosage: AT A DOSE TO ACHIEVE A TARGET AREA UNDER THE CURVE (AUC) OF 6 MILLIGRAMS PER MILLILITER*MINUTE (MG/M
     Route: 042
     Dates: start: 20170809
  4. BEVACIZUMAB [Suspect]
     Active Substance: BEVACIZUMAB
     Indication: Ovarian cancer
     Dosage: MOST RECENT DOSE PRIOR TO FIRST EPISODE OF FEVER: 24/OCT/2017 (DOSE: 730 MG)?MOST RECENT DOSE PRIOR
     Route: 042
     Dates: start: 20170905
  5. EMEND [Suspect]
     Active Substance: APREPITANT
     Indication: Nausea
     Route: 065
     Dates: start: 20171003, end: 20171005
  6. EMEND [Suspect]
     Active Substance: APREPITANT
     Route: 065
     Dates: start: 20171024, end: 20171026
  7. EMEND [Suspect]
     Active Substance: APREPITANT
     Route: 065
     Dates: start: 20171114, end: 20171116
  8. FEXOFENADINE HYDROCHLORIDE [Concomitant]
     Active Substance: FEXOFENADINE HYDROCHLORIDE
     Indication: Erythema multiforme
     Dates: start: 20170905, end: 20180110
  9. DEXAMETHASONE [Concomitant]
     Active Substance: DEXAMETHASONE
     Indication: Stomatitis
     Route: 048
     Dates: start: 20170825
  10. AMLODIPINE [Concomitant]
     Active Substance: AMLODIPINE BESYLATE
     Indication: Hypertension
     Dates: start: 20170915
  11. ALOXI [Concomitant]
     Active Substance: PALONOSETRON HYDROCHLORIDE
     Indication: Premedication
     Route: 042
     Dates: start: 20171003, end: 20171003
  12. ALOXI [Concomitant]
     Active Substance: PALONOSETRON HYDROCHLORIDE
     Route: 042
     Dates: start: 20171024, end: 20171024
  13. ALOXI [Concomitant]
     Active Substance: PALONOSETRON HYDROCHLORIDE
     Route: 042
     Dates: start: 20171114, end: 20171114
  14. RANITIDINE [Concomitant]
     Active Substance: RANITIDINE
     Indication: Premedication
     Dates: start: 20171003, end: 20171003
  15. RANITIDINE [Concomitant]
     Active Substance: RANITIDINE
     Dates: start: 20171024, end: 20171024
  16. RANITIDINE [Concomitant]
     Active Substance: RANITIDINE
     Dates: start: 20171114, end: 20171114
  17. POLARAMINE [Concomitant]
     Active Substance: DEXCHLORPHENIRAMINE MALEATE
     Indication: Premedication
     Dates: start: 20171003, end: 20171003
  18. POLARAMINE [Concomitant]
     Active Substance: DEXCHLORPHENIRAMINE MALEATE
     Dates: start: 20171024, end: 20171024
  19. POLARAMINE [Concomitant]
     Active Substance: DEXCHLORPHENIRAMINE MALEATE
     Dates: start: 20171114, end: 20171114
  20. DEXAMETHASONE SODIUM PHOSPHATE [Concomitant]
     Active Substance: DEXAMETHASONE SODIUM PHOSPHATE
     Indication: Premedication
     Route: 042
     Dates: start: 20171003, end: 20171003
  21. DEXAMETHASONE SODIUM PHOSPHATE [Concomitant]
     Active Substance: DEXAMETHASONE SODIUM PHOSPHATE
     Route: 042
     Dates: start: 20171024, end: 20171024
  22. DEXAMETHASONE SODIUM PHOSPHATE [Concomitant]
     Active Substance: DEXAMETHASONE SODIUM PHOSPHATE
     Route: 042
     Dates: start: 20171114, end: 20171114
  23. CALCIUM CHLORIDE\POTASSIUM CHLORIDE\SODIUM CHLORIDE\SODIUM LACTATE\SOR [Concomitant]
     Active Substance: CALCIUM CHLORIDE\POTASSIUM CHLORIDE\SODIUM CHLORIDE\SODIUM LACTATE\SORBITOL
     Indication: Dehydration
     Dates: start: 20171025, end: 20171025
  24. POVIDONE-IODINE [Concomitant]
     Active Substance: POVIDONE-IODINE
     Indication: Nasopharyngitis
     Dates: start: 20171114, end: 20171121

REACTIONS (1)
  - Pyrexia [Recovered/Resolved]

NARRATIVE: CASE EVENT DATE: 20171025
